FAERS Safety Report 16844590 (Version 1)
Quarter: 2019Q4

REPORT INFORMATION
  Report Type: Spontaneous
  Country: US (occurrence: US)
  Receive Date: 20190923
  Receipt Date: 20190923
  Transmission Date: 20200122
  Serious: Yes (Life-Threatening, Other)
  Sender: FDA-Public Use
  Company Number: None

PATIENT
  Age: 69 Year
  Sex: Female
  Weight: 55.8 kg

DRUGS (7)
  1. MELOXICAM. [Concomitant]
     Active Substance: MELOXICAM
  2. PROBIOTICS [Concomitant]
     Active Substance: PROBIOTICS NOS
  3. TRIMETHOPRIM. [Concomitant]
     Active Substance: TRIMETHOPRIM
  4. TYLENOL [Concomitant]
     Active Substance: ACETAMINOPHEN
  5. METHENAMINE HIPP 1GM TABLET [Suspect]
     Active Substance: METHENAMINE HIPPURATE
     Indication: INFECTION PROPHYLAXIS
     Dosage: ?          QUANTITY:60 TABLET(S);?
     Route: 048
     Dates: start: 20190828, end: 20190923
  6. METHENAMINE HIPP 1GM TABLET [Suspect]
     Active Substance: METHENAMINE HIPPURATE
     Indication: URINARY TRACT INFECTION
     Dosage: ?          QUANTITY:60 TABLET(S);?
     Route: 048
     Dates: start: 20190828, end: 20190923
  7. MULTIVITAMIN [Concomitant]
     Active Substance: VITAMINS

REACTIONS (6)
  - Anxiety [None]
  - Insomnia [None]
  - Emotional distress [None]
  - Fear [None]
  - Suicidal ideation [None]
  - Feeling jittery [None]

NARRATIVE: CASE EVENT DATE: 20190923
